FAERS Safety Report 5773068-8 (Version None)
Quarter: 2008Q2

REPORT INFORMATION
  Report Type: 
  Country: None (occurrence: None)
  Receive Date: 20080611
  Receipt Date: 20080604
  Transmission Date: 20081010
  Serious: Yes (Hospitalization)
  Sender: FDA-Public Use
  Company Number: 2008SP010879

PATIENT
  Age: 56 Year
  Sex: Male

DRUGS (4)
  1. PEG-INTRON [Suspect]
     Indication: HEPATITIS C
     Dosage: ; SC, ; SC
     Route: 058
     Dates: start: 20080422, end: 20080508
  2. PEG-INTRON [Suspect]
     Indication: HEPATITIS C
     Dosage: ; SC, ; SC
     Route: 058
     Dates: start: 20080501
  3. RIBAVIRIN [Suspect]
     Indication: HEPATITIS C
     Dosage: ; PO, ; PO
     Route: 048
     Dates: start: 20080422, end: 20080508
  4. RIBAVIRIN [Suspect]
     Indication: HEPATITIS C
     Dosage: ; PO, ; PO
     Route: 048
     Dates: start: 20080501

REACTIONS (15)
  - ASTHENIA [None]
  - CHEST PAIN [None]
  - DIZZINESS [None]
  - DYSPNOEA [None]
  - FALL [None]
  - FEELING ABNORMAL [None]
  - FLUID RETENTION [None]
  - GYNAECOMASTIA [None]
  - INFLUENZA [None]
  - INJECTION SITE ERYTHEMA [None]
  - LOCAL SWELLING [None]
  - MENTAL DISORDER [None]
  - PLATELET COUNT DECREASED [None]
  - PYREXIA [None]
  - SLEEP APNOEA SYNDROME [None]
